FAERS Safety Report 5975892-5 (Version None)
Quarter: 2008Q4

REPORT INFORMATION
  Report Type: 
  Country: None (occurrence: None)
  Receive Date: 20081202
  Receipt Date: 20081117
  Transmission Date: 20090506
  Serious: Yes (Hospitalization)
  Sender: FDA-Public Use
  Company Number: IN-GENENTECH-272380

PATIENT
  Sex: Male

DRUGS (2)
  1. BEVACIZUMAB [Suspect]
     Indication: RENAL CELL CARCINOMA
     Dosage: 450 MG, Q2W
     Route: 042
     Dates: start: 20080930
  2. INTERFERON ALFA 2A [Suspect]
     Indication: RENAL CELL CARCINOMA
     Dosage: 9 IU, 3/WEEK
     Route: 058
     Dates: start: 20080930

REACTIONS (1)
  - ANAEMIA [None]
